FAERS Safety Report 6239124-5 (Version None)
Quarter: 2009Q2

REPORT INFORMATION
  Report Type: 
  Country: None (occurrence: None)
  Receive Date: 20090618
  Receipt Date: 20090618
  Transmission Date: 20091009
  Serious: Yes (Disabling)
  Sender: FDA-Public Use
  Company Number: None

PATIENT
  Age: 40 Year
  Sex: Female

DRUGS (1)
  1. ZICAM MATRIXX [Suspect]
     Indication: NASOPHARYNGITIS
     Dosage: VERY LATE 1990'S OR THE EARLY 2000'S

REACTIONS (3)
  - ANOSMIA [None]
  - BURNING SENSATION [None]
  - DYSGEUSIA [None]
